FAERS Safety Report 7360169-6 (Version None)
Quarter: 2011Q1

REPORT INFORMATION
  Report Type: 
  Country: None (occurrence: None)
  Receive Date: 20110318
  Receipt Date: 20110315
  Transmission Date: 20110831
  Serious: No
  Sender: FDA-Public Use
  Company Number: US-PFIZER INC-2011057214

PATIENT
  Sex: Female
  Weight: 72.6 kg

DRUGS (7)
  1. LIPITOR [Suspect]
     Indication: BLOOD CHOLESTEROL INCREASED
     Dosage: 40 MG, 1X/DAY
     Route: 048
     Dates: start: 20060101
  2. COUMADIN [Concomitant]
     Dosage: UNK
  3. ISOSORBIDE [Concomitant]
     Dosage: UNK
  4. LIPITOR [Suspect]
     Dosage: 20 MG, 1X/DAY
  5. VERAPAMIL [Concomitant]
     Dosage: UNK
  6. FOSAMAX [Concomitant]
     Dosage: UNK
  7. PREMARIN [Concomitant]
     Dosage: UNK

REACTIONS (1)
  - ARTHRALGIA [None]
